FAERS Safety Report 10268142 (Version 2)
Quarter: 2014Q3

REPORT INFORMATION
  Report Type: Spontaneous
  Country: US (occurrence: US)
  Receive Date: 20140630
  Receipt Date: 20140710
  Transmission Date: 20150326
  Serious: Yes (Other)
  Sender: FDA-Public Use
  Company Number: US-ACTELION-A-US2014-100876

PATIENT
  Age: 48 Year
  Sex: Male
  Weight: 78.46 kg

DRUGS (15)
  1. LORTAB [Concomitant]
     Active Substance: ACETAMINOPHEN\HYDROCODONE BITARTRATE
     Dosage: 500 MG, UNK
     Route: 048
  2. TOPROL XL [Concomitant]
     Active Substance: METOPROLOL SUCCINATE
     Dosage: 25 MG, UNK
     Route: 048
  3. VELETRI [Suspect]
     Active Substance: EPOPROSTENOL
     Indication: PULMONARY ARTERIAL HYPERTENSION
     Dosage: 83 NG/KG, PER MIN
     Route: 041
     Dates: start: 20140606
  4. LIPITOR [Concomitant]
     Active Substance: ATORVASTATIN CALCIUM
     Dosage: 40 MG, UNK
     Route: 048
  5. PROZAC [Concomitant]
     Active Substance: FLUOXETINE HYDROCHLORIDE
     Dosage: 40 MG, UNK
     Route: 048
  6. XANAX [Concomitant]
     Active Substance: ALPRAZOLAM
     Dosage: 5 MG, UNK
     Route: 048
  7. WARFARIN [Concomitant]
     Active Substance: WARFARIN
  8. COMBIVENT [Concomitant]
     Active Substance: ALBUTEROL SULFATE\IPRATROPIUM BROMIDE
     Dosage: 2 PUFF, Q4HRS
     Route: 055
     Dates: start: 20120820
  9. COMBIVENT RESPIMAT [Concomitant]
     Active Substance: ALBUTEROL SULFATE\IPRATROPIUM BROMIDE
     Dosage: UNK, Q4HRS
     Route: 055
  10. AMBIEN [Concomitant]
     Active Substance: ZOLPIDEM TARTRATE
     Dosage: 10 MG, QPM
     Route: 048
  11. CLARITIN [Concomitant]
     Active Substance: LORATADINE
     Dosage: 10 MG, UNK
     Route: 048
  12. VELETRI [Suspect]
     Active Substance: EPOPROSTENOL
     Dosage: 81 NG/KG, PER MIN
     Route: 041
     Dates: start: 20100823
  13. POTASSIUM CHLORIDE. [Concomitant]
     Active Substance: POTASSIUM CHLORIDE
     Dosage: 10 MEQ, QD
     Route: 048
     Dates: start: 20091106
  14. NEXIUM [Concomitant]
     Active Substance: ESOMEPRAZOLE MAGNESIUM
     Dosage: 40 MG, QD
     Route: 048
  15. FLONASE [Concomitant]
     Active Substance: FLUTICASONE PROPIONATE
     Dosage: UNK, QD
     Route: 045
     Dates: start: 20140527

REACTIONS (14)
  - Lymphadenopathy [Unknown]
  - Fatigue [Unknown]
  - Dyspnoea exertional [Unknown]
  - Right ventricular systolic pressure increased [Unknown]
  - Nasopharyngitis [Unknown]
  - Dyspepsia [Unknown]
  - Biopsy lymph gland [Unknown]
  - Flushing [Unknown]
  - Dyspnoea [Unknown]
  - Nasal discharge discolouration [Unknown]
  - Cough [Unknown]
  - Wheezing [Unknown]
  - Insomnia [Unknown]
  - Nasal congestion [Unknown]

NARRATIVE: CASE EVENT DATE: 2014
